FAERS Safety Report 7834001-8 (Version None)
Quarter: 2011Q4

REPORT INFORMATION
  Report Type: 
  Country: None (occurrence: None)
  Receive Date: 20111024
  Receipt Date: 20111021
  Transmission Date: 20120403
  Serious: Yes (Other)
  Sender: FDA-Public Use
  Company Number: US-JNJFOC-20100303807

PATIENT
  Sex: Male

DRUGS (6)
  1. LEVAQUIN [Suspect]
     Indication: DERMATITIS
     Route: 048
     Dates: start: 20080901
  2. LEVAQUIN [Suspect]
     Route: 042
     Dates: start: 20060403, end: 20060407
  3. LEVAQUIN [Suspect]
     Indication: INGUINAL HERNIA
     Route: 042
     Dates: start: 20060403, end: 20060407
  4. LEVAQUIN [Suspect]
     Indication: CHRONIC OBSTRUCTIVE PULMONARY DISEASE
     Route: 048
     Dates: start: 20080901
  5. PREDNISONE [Suspect]
     Indication: DERMATITIS
     Route: 065
  6. PREDNISONE [Suspect]
     Indication: CHRONIC OBSTRUCTIVE PULMONARY DISEASE
     Route: 065

REACTIONS (3)
  - EMOTIONAL DISORDER [None]
  - ARTHROPATHY [None]
  - ROTATOR CUFF SYNDROME [None]
